FAERS Safety Report 6978445-5 (Version None)
Quarter: 2010Q3

REPORT INFORMATION
  Report Type: 
  Country: None (occurrence: None)
  Receive Date: 20100913
  Receipt Date: 20100903
  Transmission Date: 20110219
  Serious: Yes (Other)
  Sender: FDA-Public Use
  Company Number: CA-ASTRAZENECA-2010SE41833

PATIENT
  Age: 36 Year
  Sex: Male

DRUGS (6)
  1. QUETIAPINE [Suspect]
     Indication: BIPOLAR DISORDER
     Route: 048
  2. LAMOTRIGINE [Suspect]
  3. LAMOTRIGINE [Suspect]
  4. ZOPICLONE [Suspect]
  5. LITHIUM CARBONATE [Concomitant]
  6. INSULIN [Concomitant]
     Indication: TYPE 1 DIABETES MELLITUS

REACTIONS (3)
  - CHOLESTASIS [None]
  - HYPERCHOLESTEROLAEMIA [None]
  - HYPONATRAEMIA [None]
